FAERS Safety Report 8089330-2 (Version None)
Quarter: 2012Q1

REPORT INFORMATION
  Report Type: 
  Country: None (occurrence: None)
  Receive Date: 20120128
  Receipt Date: 20110630
  Transmission Date: 20120608
  Serious: No
  Sender: FDA-Public Use
  Company Number: US-ABBOTT-11P-163-0835658-00

PATIENT
  Age: 26 Year
  Sex: Female

DRUGS (2)
  1. PERCOCET [Concomitant]
     Indication: RENAL PAIN
     Dosage: 10/325 MG, AS NEEDED
  2. HUMIRA [Suspect]
     Indication: PSORIASIS
     Dates: start: 20110630

REACTIONS (3)
  - DRUG DOSE OMISSION [None]
  - INJECTION SITE HAEMORRHAGE [None]
  - WRONG TECHNIQUE IN DRUG USAGE PROCESS [None]
